FAERS Safety Report 5377215-1 (Version None)
Quarter: 2007Q2

REPORT INFORMATION
  Report Type: 
  Country: None (occurrence: None)
  Receive Date: 20070629
  Receipt Date: 20070629
  Transmission Date: 20071010
  Serious: Yes (Other)
  Sender: FDA-Public Use
  Company Number: None

PATIENT
  Age: 75 Year
  Sex: Male
  Weight: 73.0291 kg

DRUGS (9)
  1. PHOSPHOSODA FLAVOR NOT SPECIFIED [Suspect]
     Indication: COLONOSCOPY
     Dosage: PO
     Route: 048
     Dates: start: 20050216
  2. MAGNESIUM CITRATE [Suspect]
  3. LEVOXYL [Concomitant]
  4. CARDENE [Concomitant]
  5. GLUCOPHAGE [Concomitant]
  6. PRAVACHOL [Concomitant]
  7. ASPIRIN [Concomitant]
  8. REZULIN [Concomitant]
  9. VITAMIN E [Concomitant]

REACTIONS (13)
  - ABDOMINAL PAIN [None]
  - CARDIOVASCULAR DISORDER [None]
  - DEHYDRATION [None]
  - DIVERTICULUM INTESTINAL [None]
  - DYSLIPIDAEMIA [None]
  - FATIGUE [None]
  - GLOMERULOSCLEROSIS [None]
  - KIDNEY FIBROSIS [None]
  - PROSTATE EXAMINATION ABNORMAL [None]
  - RENAL CYST [None]
  - RENAL FAILURE ACUTE [None]
  - RENAL TUBULAR ATROPHY [None]
  - RENAL TUBULAR NECROSIS [None]
